FAERS Safety Report 20900233 (Version 1)
Quarter: 2022Q2

REPORT INFORMATION
  Report Type: Spontaneous
  Country: GB (occurrence: GB)
  Receive Date: 20220601
  Receipt Date: 20220601
  Transmission Date: 20220721
  Serious: Yes (Other)
  Sender: FDA-Public Use
  Company Number: None

PATIENT
  Age: 46 Year
  Sex: Male
  Weight: 85.80 kg

DRUGS (16)
  1. RAMIPRIL [Suspect]
     Active Substance: RAMIPRIL
     Indication: Abdominal pain
     Route: 048
  2. OMEPRAZOLE [Concomitant]
     Active Substance: OMEPRAZOLE
     Dosage: STRENGTH- 20 MG
     Dates: start: 20220516
  3. ASPIRIN [Concomitant]
     Active Substance: ASPIRIN
     Dosage: STRENGTH- 75 MG
     Dates: start: 20220421
  4. ATORVASTATIN [Concomitant]
     Active Substance: ATORVASTATIN
     Dosage: AT NIGHT, STRENGTH- 80 MG
     Dates: start: 20220421
  5. DERMOL [Concomitant]
     Active Substance: BENZALKONIUM CHLORIDE\CHLORHEXIDINE HYDROCHLORIDE\ISOPROPYL MYRISTATE\PARAFFIN
     Dosage: ONE OR TWO 5 ML SPOONFULS TO BE TAKEN AFTER MEALS AND AT BED TIME
     Dates: start: 20220421
  6. CALCIUM CARBONATE\SODIUM ALGINATE\SODIUM BICARBONATE [Concomitant]
     Active Substance: CALCIUM CARBONATE\SODIUM ALGINATE\SODIUM BICARBONATE
     Dosage: ONE OR TWO 5 ML SPOONFULS TO BE TAKEN AFTER MEALS AND AT BED TIME
     Dates: start: 20220421
  7. CETIRIZINE [Concomitant]
     Active Substance: CETIRIZINE HYDROCHLORIDE
     Dosage: STRENGTH- 10 MG, CAPSULE
     Dates: start: 20220426
  8. COCODAMOL [Concomitant]
     Active Substance: ACETAMINOPHEN\CODEINE PHOSPHATE
     Dosage: 1-2 TABLETS UP TO FOUR TIMES DAILY WHEN REQUIRED, STRENGTH- 30MG/500MG
     Dates: start: 20220421
  9. ISOPROPYL MYRISTATE\MINERAL OIL [Concomitant]
     Active Substance: ISOPROPYL MYRISTATE\MINERAL OIL
     Dosage: ASD
     Dates: start: 20220426
  10. ESOMEPRAZOLE [Concomitant]
     Active Substance: ESOMEPRAZOLE
     Dosage: STRENGTH- 20 MG
     Dates: start: 20220317, end: 20220516
  11. EUMOVATE [Concomitant]
     Active Substance: CLOBETASONE BUTYRATE
     Dosage: THINLY TWICE A DAY FOR MAX 1 WEEK TO LEGS, STRENGTH- 0.05 %
     Dates: start: 20220426
  12. FLUCLOXACILLIN [Concomitant]
     Active Substance: FLUCLOXACILLIN
     Dosage: STRENGTH- 500 MG
     Dates: start: 20220426
  13. FUCIDIN [Concomitant]
     Active Substance: FUSIDATE SODIUM
     Dosage: APPLY THINLY TWICE DAILY
     Dates: start: 20220325
  14. ISPAGHULA EXTRACT\PSYLLIUM [Concomitant]
     Active Substance: HERBALS\PLANTAGO OVATA SEED\PLANTAGO SEED
     Dosage: TAKE CONTENTS OF ONE SACHET IN WATER TWICE A DAY AFTER FOOD
     Dates: start: 20220421
  15. MIRTAZAPINE [Concomitant]
     Active Substance: MIRTAZAPINE
     Dosage: AT NIGHT, STRENGTH- 30 MG
     Dates: start: 20220421
  16. NICOTINELL [Concomitant]
     Active Substance: NICOTINE
     Dosage: ASD
     Dates: start: 20220516

REACTIONS (3)
  - Disturbance in attention [Recovered/Resolved]
  - Confusional state [Unknown]
  - Off label use [Unknown]

NARRATIVE: CASE EVENT DATE: 20200519
